FAERS Safety Report 19755055 (Version 1)
Quarter: 2021Q3

REPORT INFORMATION
  Report Type: Spontaneous
  Country: IE (occurrence: IE)
  Receive Date: 20210827
  Receipt Date: 20210827
  Transmission Date: 20211014
  Serious: Yes (Disabling, Other)
  Sender: FDA-Public Use
  Company Number: IE-TEVA-2021-IE-1945293

PATIENT
  Age: 56 Year
  Sex: Male

DRUGS (4)
  1. ROSUVASTATIN TEVA PHARMA [Suspect]
     Active Substance: ROSUVASTATIN CALCIUM
     Indication: HYPERLIPIDAEMIA
     Dosage: 10 MILLIGRAM DAILY;
     Route: 048
     Dates: start: 20210225, end: 20210621
  2. CANDESARTAN KRKA [Concomitant]
     Active Substance: CANDESARTAN
     Indication: HYPERTENSION
     Dosage: 8 MG
     Dates: start: 20200120, end: 20210722
  3. ATORVASTATIN [Suspect]
     Active Substance: ATORVASTATIN
     Indication: HYPERLIPIDAEMIA
     Dosage: 10 MILLIGRAM DAILY;  AT NIGHT
     Route: 048
     Dates: end: 20210729
  4. PANTOPRAZOLE TEVA PHARMA [Concomitant]
     Active Substance: PANTOPRAZOLE SODIUM
     Dosage: 40 MG
     Dates: start: 20160513, end: 20210722

REACTIONS (2)
  - Blister [Recovered/Resolved]
  - Mouth ulceration [Recovered/Resolved]

NARRATIVE: CASE EVENT DATE: 20210619
